FAERS Safety Report 5266842-8 (Version None)
Quarter: 2007Q1

REPORT INFORMATION
  Report Type: 
  Country: None (occurrence: None)
  Receive Date: 20061213
  Receipt Date: 20041025
  Transmission Date: 20070707
  Serious: Yes (Hospitalization)
  Sender: FDA-Public Use
  Company Number: 2004UW22102

PATIENT
  Age: 66 Year
  Sex: Female
  Weight: 58.967 kg

DRUGS (3)
  1. ARIMIDEX [Suspect]
     Indication: BREAST CANCER
     Dosage: 1 MG QD PO
     Route: 048
     Dates: start: 20020701
  2. TAMOXIFEN CITRATE [Suspect]
     Indication: BREAST CANCER
     Dosage: 10 MG BID PO
     Route: 048
  3. SYNTHROID [Concomitant]

REACTIONS (2)
  - CEREBROVASCULAR ACCIDENT [None]
  - NEUROPATHY PERIPHERAL [None]
